FAERS Safety Report 23328491 (Version 1)
Quarter: 2023Q4

REPORT INFORMATION
  Report Type: Spontaneous
  Country: US (occurrence: US)
  Receive Date: 20231221
  Receipt Date: 20231221
  Transmission Date: 20240110
  Serious: Yes (Death)
  Sender: FDA-Public Use
  Company Number: US-PRINSTON PHARMACEUTICAL INC.-2023PRN00628

PATIENT
  Age: 69 Year

DRUGS (4)
  1. DONEPEZIL [Suspect]
     Active Substance: DONEPEZIL
     Indication: Completed suicide
     Dosage: ^PILLS^
  2. QUETIAPINE [Suspect]
     Active Substance: QUETIAPINE
     Indication: Completed suicide
     Dosage: ^PILLS^
  3. VENLAFAXINE [Suspect]
     Active Substance: VENLAFAXINE HYDROCHLORIDE
     Indication: Completed suicide
     Dosage: ^PILLS^
  4. DESVENLAFAXINE [Suspect]
     Active Substance: DESVENLAFAXINE
     Indication: Completed suicide
     Dosage: ^PILLS^

REACTIONS (1)
  - Completed suicide [Fatal]
